FAERS Safety Report 6808324-5 (Version None)
Quarter: 2010Q2

REPORT INFORMATION
  Report Type: 
  Country: None (occurrence: None)
  Receive Date: 20100629
  Receipt Date: 20090616
  Transmission Date: 20101027
  Serious: No
  Sender: FDA-Public Use
  Company Number: US-PFIZER INC-2009193218

PATIENT

DRUGS (6)
  1. TIKOSYN [Suspect]
  2. WARFARIN [Concomitant]
  3. LISINOPRIL [Concomitant]
  4. CARTIA XT [Concomitant]
  5. POTASSIUM [Concomitant]
  6. ZANTAC [Concomitant]

REACTIONS (2)
  - CONSTIPATION [None]
  - PAIN [None]
